FAERS Safety Report 8015657-6 (Version None)
Quarter: 2011Q4

REPORT INFORMATION
  Report Type: 
  Country: None (occurrence: None)
  Receive Date: 20111230
  Receipt Date: 20111216
  Transmission Date: 20120403
  Serious: Yes (Other)
  Sender: FDA-Public Use
  Company Number: AU-CELGENEUS-008-21660-11122055

PATIENT
  Sex: Female

DRUGS (1)
  1. ABRAXANE [Suspect]
     Route: 065

REACTIONS (2)
  - BLINDNESS [None]
  - VISION BLURRED [None]
